APPROVED DRUG PRODUCT: AEMCOLO
Active Ingredient: RIFAMYCIN SODIUM
Strength: EQ 194MG BASE
Dosage Form/Route: TABLET, DELAYED RELEASE;ORAL
Application: N210910 | Product #001
Applicant: COSMO TECHNOLOGIES LTD
Approved: Nov 16, 2018 | RLD: Yes | RS: No | Type: DISCN

EXCLUSIVITY:
Code: NCE | Date: Nov 16, 2023
Code: GAIN | Date: Nov 16, 2028